FAERS Safety Report 8207444-0 (Version None)
Quarter: 2012Q1

REPORT INFORMATION
  Report Type: 
  Country: None (occurrence: None)
  Receive Date: 20120314
  Receipt Date: 20120301
  Transmission Date: 20120608
  Serious: Yes (Other)
  Sender: FDA-Public Use
  Company Number: US-ASTELLAS-2012US002597

PATIENT
  Sex: Female
  Weight: 67 kg

DRUGS (3)
  1. VESICARE [Suspect]
     Indication: URINARY TRACT INFECTION
     Dosage: 5 MG, UID/QD
     Route: 048
     Dates: start: 19970101
  2. MOBIC [Concomitant]
     Indication: ARTHRITIS
     Dosage: 15 MG, UID/QD
     Route: 048
     Dates: start: 20030101
  3. BONIVA [Concomitant]
     Indication: OSTEOPENIA
     Dosage: 50 MG, MONTHLY
     Route: 048
     Dates: start: 20050101

REACTIONS (2)
  - HIP SURGERY [None]
  - OFF LABEL USE [None]
